FAERS Safety Report 10714562 (Version 1)
Quarter: 2015Q1

REPORT INFORMATION
  Report Type: Spontaneous
  Country: CH (occurrence: CH)
  Receive Date: 20150115
  Receipt Date: 20150115
  Transmission Date: 20150721
  Serious: Yes (Other)
  Sender: FDA-Public Use
  Company Number: CH-PFIZER INC-2015008360

PATIENT
  Age: 51 Year
  Sex: Male

DRUGS (11)
  1. PROPRANOLOL [Concomitant]
     Active Substance: PROPRANOLOL\PROPRANOLOL HYDROCHLORIDE
     Dosage: 20 MG, 2X/DAY
     Route: 048
     Dates: start: 2007
  2. CRESTOR [Suspect]
     Active Substance: ROSUVASTATIN CALCIUM
     Indication: HYPERLIPIDAEMIA
     Dosage: 10 MG, 1X/DAY
     Route: 048
     Dates: start: 2007, end: 2012
  3. ESOMEPRAZOL [Interacting]
     Active Substance: ESOMEPRAZOLE
     Dosage: 40 MG, 2X/DAY
     Route: 048
  4. SORTIS [Suspect]
     Active Substance: ATORVASTATIN
     Indication: HYPERLIPIDAEMIA
     Dosage: 10 MG, 1X/DAY
     Route: 048
     Dates: start: 2012, end: 201410
  5. EZETROL [Concomitant]
     Active Substance: EZETIMIBE
     Indication: HYPERLIPIDAEMIA
     Dosage: 1 DF, 1X/DAY
     Dates: start: 2012
  6. AMLODIPINE [Concomitant]
     Active Substance: AMLODIPINE BESYLATE
     Indication: ESSENTIAL HYPERTENSION
     Dosage: 5 MG, 1X/DAY
     Route: 048
     Dates: start: 2012
  7. ASPIRIN ^BAYER^ [Suspect]
     Active Substance: ASPIRIN
     Dosage: 100 MG, 1X/DAY
     Route: 048
     Dates: start: 2011
  8. FEXOFENADINE [Concomitant]
     Active Substance: FEXOFENADINE\FEXOFENADINE HYDROCHLORIDE
     Dosage: 1 DF, AS NEEDED
     Route: 048
  9. PREVISCAN [Suspect]
     Active Substance: FLUINDIONE
     Indication: SUPRAVENTRICULAR TACHYARRHYTHMIA
     Dosage: 1 DF, AS NEEDED
     Route: 048
     Dates: start: 2005
  10. LOSARTAN [Concomitant]
     Active Substance: LOSARTAN
     Indication: ESSENTIAL HYPERTENSION
     Dosage: 75 MG, 1X/DAY (50 MG, 1.5 PER DAY)
     Route: 048
     Dates: start: 2012
  11. TAMBOCOR [Concomitant]
     Active Substance: FLECAINIDE ACETATE
     Indication: SUPRAVENTRICULAR TACHYARRHYTHMIA
     Dosage: 100 MG, 1X/DAY
     Route: 048
     Dates: start: 2005

REACTIONS (10)
  - Tendon rupture [Recovered/Resolved]
  - Ligament sprain [Recovering/Resolving]
  - Drug interaction [Unknown]
  - Traumatic haematoma [Unknown]
  - Spontaneous haematoma [Unknown]
  - Fall [Recovering/Resolving]
  - Tendon injury [Unknown]
  - Ligament injury [Recovered/Resolved]
  - Haemarthrosis [Recovered/Resolved]
  - Tendonitis [Unknown]

NARRATIVE: CASE EVENT DATE: 2013
